FAERS Safety Report 13047587 (Version 1)
Quarter: 2016Q4

REPORT INFORMATION
  Report Type: Spontaneous
  Country: SE (occurrence: SE)
  Receive Date: 20161220
  Receipt Date: 20161220
  Transmission Date: 20170207
  Serious: Yes (Hospitalization, Other)
  Sender: FDA-Public Use
  Company Number: SE-BAYER-2016-234326

PATIENT
  Age: 25 Year
  Sex: Female

DRUGS (1)
  1. JAYDESS [Suspect]
     Active Substance: LEVONORGESTREL
     Indication: CONTRACEPTION
     Dosage: 14 MCG/24HR, CONT
     Route: 015
     Dates: start: 201605, end: 20161118

REACTIONS (15)
  - Genital haemorrhage [None]
  - Pallor [None]
  - Haemorrhagic anaemia [None]
  - Genital haemorrhage [None]
  - Abdominal pain lower [None]
  - Vomiting [None]
  - Ectopic pregnancy with contraceptive device [None]
  - Drug ineffective [None]
  - Fatigue [None]
  - Syncope [None]
  - Pelvic pain [None]
  - Nausea [None]
  - Abdominal tenderness [None]
  - Intra-abdominal haemorrhage [None]
  - Ovarian cyst [None]

NARRATIVE: CASE EVENT DATE: 2016
